FAERS Safety Report 9938394 (Version 1)
Quarter: 2014Q1

REPORT INFORMATION
  Report Type: Spontaneous
  Country: US (occurrence: US)
  Receive Date: 20140303
  Receipt Date: 20140303
  Transmission Date: 20141002
  Serious: No
  Sender: FDA-Public Use
  Company Number: US-ABBVIE-13P-163-1032109-00

PATIENT
  Age: 59 Year
  Sex: Female
  Weight: 83.54 kg

DRUGS (1)
  1. HUMIRA [Suspect]
     Indication: CROHN^S DISEASE
     Route: 058
     Dates: start: 20121109, end: 20121227

REACTIONS (18)
  - Cough [Recovering/Resolving]
  - Nasopharyngitis [Recovered/Resolved]
  - Chest discomfort [Recovered/Resolved]
  - Rash macular [Not Recovered/Not Resolved]
  - Rash pustular [Not Recovered/Not Resolved]
  - Rash macular [Not Recovered/Not Resolved]
  - Rash pustular [Not Recovered/Not Resolved]
  - Incision site infection [Recovering/Resolving]
  - Staphylococcal infection [Recovering/Resolving]
  - Purulent discharge [Recovering/Resolving]
  - Rash macular [Not Recovered/Not Resolved]
  - Rash macular [Not Recovered/Not Resolved]
  - Rash papular [Not Recovered/Not Resolved]
  - Exfoliative rash [Not Recovered/Not Resolved]
  - Wound dehiscence [Recovering/Resolving]
  - Weight decreased [Unknown]
  - Pollakiuria [Not Recovered/Not Resolved]
  - Rash generalised [Not Recovered/Not Resolved]
